FAERS Safety Report 16010251 (Version 1)
Quarter: 2019Q1

REPORT INFORMATION
  Report Type: Spontaneous
  Country: FR (occurrence: FR)
  Receive Date: 20190227
  Receipt Date: 20190227
  Transmission Date: 20190418
  Serious: Yes (Hospitalization)
  Sender: FDA-Public Use
  Company Number: FR-TEVA-2019-FR-1016148

PATIENT
  Age: 27 Year
  Sex: Female

DRUGS (2)
  1. LEVETIRACETAM. [Suspect]
     Active Substance: LEVETIRACETAM
     Indication: EPILEPSY
     Dosage: 1000 MILLIGRAM DAILY;
     Route: 048
     Dates: start: 20190116
  2. CLOBAZAM. [Suspect]
     Active Substance: CLOBAZAM
     Indication: EPILEPSY
     Dosage: 10 MILLIGRAM DAILY;
     Route: 048

REACTIONS (3)
  - Psychomotor skills impaired [Recovering/Resolving]
  - Affect lability [Unknown]
  - Dystonia [Unknown]

NARRATIVE: CASE EVENT DATE: 20190116
